FAERS Safety Report 4319261-2 (Version None)
Quarter: 2004Q1

REPORT INFORMATION
  Report Type: 
  Country: None (occurrence: None)
  Receive Date: 20040316
  Receipt Date: 20040304
  Transmission Date: 20041129
  Serious: Yes (Other)
  Sender: FDA-Public Use
  Company Number: DE-SHR-04-020999

PATIENT
  Age: 40 Year
  Sex: Female

DRUGS (1)
  1. FLUDARA [Suspect]
     Indication: CHRONIC LYMPHOCYTIC LEUKAEMIA
     Dosage: 25 MG/M2, CYCLES, INTRAVENOUS
     Route: 042
     Dates: start: 20000322, end: 20020315

REACTIONS (3)
  - MUSCULAR WEAKNESS [None]
  - MYOPATHY [None]
  - PARESIS [None]
